FAERS Safety Report 4568045-9 (Version None)
Quarter: 2005Q1

REPORT INFORMATION
  Report Type: 
  Country: None (occurrence: None)
  Receive Date: 20050202
  Receipt Date: 20050124
  Transmission Date: 20050727
  Serious: Yes (Other)
  Sender: FDA-Public Use
  Company Number: PHBS2005CA01324

PATIENT
  Age: 52 Year
  Sex: Female

DRUGS (2)
  1. ESTRADOT [Suspect]
     Dosage: 75 UG/DAY
     Route: 062
  2. ESTRADOT [Suspect]
     Dosage: 50 UG/DAY
     Route: 062

REACTIONS (8)
  - ABDOMINAL PAIN [None]
  - CHOLECYSTECTOMY [None]
  - CHOLECYSTITIS [None]
  - GASTROINTESTINAL DISORDER [None]
  - GASTROOESOPHAGEAL REFLUX DISEASE [None]
  - HEPATIC PAIN [None]
  - NAUSEA [None]
  - VOMITING [None]
